FAERS Safety Report 12383174 (Version 4)
Quarter: 2016Q3

REPORT INFORMATION
  Report Type: Spontaneous
  Country: US (occurrence: US)
  Receive Date: 20160518
  Receipt Date: 20160728
  Transmission Date: 20161109
  Serious: Yes (Other)
  Sender: FDA-Public Use
  Company Number: US-PFIZER INC-2016262317

PATIENT
  Age: 80 Year
  Sex: Female

DRUGS (1)
  1. LYRICA [Suspect]
     Active Substance: PREGABALIN
     Indication: BURNING SENSATION
     Dosage: 75 MG, 2X/DAY

REACTIONS (3)
  - Visual acuity reduced [Not Recovered/Not Resolved]
  - Eye haemorrhage [Unknown]
  - Macular degeneration [Unknown]

NARRATIVE: CASE EVENT DATE: 2014
